FAERS Safety Report 5533225-2 (Version None)
Quarter: 2007Q4

REPORT INFORMATION
  Report Type: 
  Country: None (occurrence: None)
  Receive Date: 20071120
  Receipt Date: 20070806
  Transmission Date: 20080405
  Serious: No
  Sender: FDA-Public Use
  Company Number: WAES 0706USA04363

PATIENT
  Age: 69 Year
  Sex: Female
  Weight: 72.1219 kg

DRUGS (1)
  1. JANUVIA [Suspect]
     Indication: TYPE 2 DIABETES MELLITUS
     Dosage: 100  MG/DAILY/PO
     Route: 048
     Dates: start: 20070402, end: 20070409

REACTIONS (2)
  - NAUSEA [None]
  - SKIN LESION [None]
